FAERS Safety Report 18890522 (Version 1)
Quarter: 2021Q1

REPORT INFORMATION
  Report Type: Report from Study
  Country: DE (occurrence: DE)
  Receive Date: 20210214
  Receipt Date: 20210214
  Transmission Date: 20210420
  Serious: Yes (Other)
  Sender: FDA-Public Use
  Company Number: DE-SUN PHARMACEUTICAL INDUSTRIES LTD-2021R1-279400

PATIENT
  Sex: Male

DRUGS (4)
  1. PARACETAMOL [Suspect]
     Active Substance: ACETAMINOPHEN
     Indication: BODY TEMPERATURE
     Dosage: UNK
     Route: 064
  2. ETHACRIDINE [Concomitant]
     Active Substance: ETHACRIDINE
     Indication: PHARYNGITIS
     Dosage: UNK
     Route: 064
  3. PROCAINE [Concomitant]
     Active Substance: PROCAINE
     Indication: INTERCOSTAL NEURALGIA
     Dosage: UNK
     Route: 064
  4. AMOXICILLIN. [Concomitant]
     Active Substance: AMOXICILLIN
     Indication: BRONCHITIS
     Dosage: UNK
     Route: 064

REACTIONS (3)
  - Patent ductus arteriosus [Recovered/Resolved]
  - Term birth [Unknown]
  - Foetal exposure during pregnancy [Unknown]
